FAERS Safety Report 7524913-7 (Version None)
Quarter: 2011Q2

REPORT INFORMATION
  Report Type: 
  Country: None (occurrence: None)
  Receive Date: 20110606
  Receipt Date: 20110516
  Transmission Date: 20111010
  Serious: Yes (Life-Threatening, Hospitalization, Other)
  Sender: FDA-Public Use
  Company Number: US-BAYER-201028645NA

PATIENT
  Age: 14 Year
  Sex: Female
  Weight: 77 kg

DRUGS (2)
  1. PEPCID [Concomitant]
  2. YAZ [Suspect]
     Indication: PRODUCT USED FOR UNKNOWN INDICATION
     Dosage: UNK UNK, UNK
     Route: 048
     Dates: start: 20080501, end: 20080701

REACTIONS (14)
  - ANEURYSM [None]
  - ABNORMAL BEHAVIOUR [None]
  - VOMITING [None]
  - ASTHENIA [None]
  - PRESYNCOPE [None]
  - INTRACRANIAL PRESSURE INCREASED [None]
  - NAUSEA [None]
  - DEPRESSION [None]
  - HYPOAESTHESIA [None]
  - DEEP VEIN THROMBOSIS [None]
  - PAIN [None]
  - HEADACHE [None]
  - SUPERIOR SAGITTAL SINUS THROMBOSIS [None]
  - STRESS [None]
